FAERS Safety Report 14859299 (Version 2)
Quarter: 2018Q3

REPORT INFORMATION
  Report Type: Report from Study
  Country: US (occurrence: US)
  Receive Date: 20180508
  Receipt Date: 20180706
  Transmission Date: 20181010
  Serious: Yes (Death, Other)
  Sender: FDA-Public Use
  Company Number: US-CIPLA (EU) LIMITED-2018US17268

PATIENT

DRUGS (8)
  1. GEMCITABINE [Suspect]
     Active Substance: GEMCITABINE\GEMCITABINE HYDROCHLORIDE
     Dosage: 600 MG/M2 ON DAY 1 AND DAY 8 EVERY 21 DAYS
     Route: 065
  2. DEXAMETHASONE. [Concomitant]
     Active Substance: DEXAMETHASONE
     Indication: BREAST CANCER
     Dosage: 12 MG, ON THE DAYS OF SYSTEMIC CHEMOTHERAPY
     Route: 042
  3. VINORELBINE [Suspect]
     Active Substance: VINORELBINE\VINORELBINE TARTRATE
     Dosage: 15 MG/M2 ON DAY 1 AND DAY 8 EVERY 21 DAYS
     Route: 065
  4. GEMCITABINE [Suspect]
     Active Substance: GEMCITABINE\GEMCITABINE HYDROCHLORIDE
     Indication: BREAST CANCER
     Dosage: 1000 MG/M2, ON DAY 1 AND DAY 8 EVERY 21 DAYS
     Route: 065
  5. PEMBROLIZUMAB. [Suspect]
     Active Substance: PEMBROLIZUMAB
     Indication: BREAST CANCER
     Dosage: 2 MG/KG, 30 MIN EVERY 21 DAYS
     Route: 042
  6. VINORELBINE [Suspect]
     Active Substance: VINORELBINE\VINORELBINE TARTRATE
     Indication: BREAST CANCER
     Dosage: 25 MG/M2, ON DAY 1 AND DAY 8 EVERY 21 DAYS
     Route: 065
  7. GEMCITABINE [Suspect]
     Active Substance: GEMCITABINE\GEMCITABINE HYDROCHLORIDE
     Dosage: 800 MG/M2 ON DAY 1 AND DAY 8 EVERY 21 DAYS
     Route: 065
  8. VINORELBINE [Suspect]
     Active Substance: VINORELBINE\VINORELBINE TARTRATE
     Dosage: 20 MG/M2 ON DAY 1 AND DAY 8 EVERY 21 DAYS
     Route: 065

REACTIONS (6)
  - Pain in extremity [Unknown]
  - Fatigue [Unknown]
  - Disease progression [Unknown]
  - Death [Fatal]
  - Neutropenia [Unknown]
  - Nausea [Unknown]
